FAERS Safety Report 5217701-8 (Version None)
Quarter: 2007Q1

REPORT INFORMATION
  Report Type: 
  Country: None (occurrence: None)
  Receive Date: 20061130
  Receipt Date: 20060614
  Transmission Date: 20070707
  Serious: Yes (Other)
  Sender: FDA-Public Use
  Company Number: US200601005088

PATIENT
  Age: 28 Year
  Sex: Male
  Weight: 125.6 kg

DRUGS (6)
  1. ZYPREXA [Suspect]
     Indication: ANXIETY
     Dosage: SEE IMAGE
     Route: 048
     Dates: start: 20010510, end: 20040511
  2. ZYPREXA [Suspect]
     Indication: ANXIETY
     Dosage: SEE IMAGE
     Route: 048
     Dates: start: 20010201
  3. ZYPREXA [Suspect]
     Indication: ANXIETY
     Dosage: SEE IMAGE
     Route: 048
     Dates: start: 20040511
  4. ZYPREXA ZYDIS [Suspect]
     Dosage: SEE IMAGE
     Route: 048
     Dates: start: 20050311, end: 20050610
  5. ZYPREXA ZYDIS [Suspect]
     Dosage: SEE IMAGE
     Route: 048
     Dates: start: 20050610
  6. ABILIFY [Concomitant]

REACTIONS (2)
  - DIABETES MELLITUS NON-INSULIN-DEPENDENT [None]
  - WEIGHT INCREASED [None]
